FAERS Safety Report 7989376-6 (Version None)
Quarter: 2011Q4

REPORT INFORMATION
  Report Type: 
  Country: None (occurrence: None)
  Receive Date: 20111216
  Receipt Date: 20111216
  Transmission Date: 20120403
  Serious: No
  Sender: FDA-Public Use
  Company Number: None

PATIENT
  Age: 36 Year
  Sex: Male

DRUGS (1)
  1. AMOXICILLIN [Suspect]
     Dates: start: 20091026, end: 20091030

REACTIONS (4)
  - LIVER INJURY [None]
  - HEPATITIS A ANTIBODY POSITIVE [None]
  - INTERNATIONAL NORMALISED RATIO DECREASED [None]
  - JAUNDICE [None]
